FAERS Safety Report 4536361-2 (Version None)
Quarter: 2004Q4

REPORT INFORMATION
  Report Type: 
  Country: None (occurrence: None)
  Receive Date: 20041223
  Receipt Date: 20040819
  Transmission Date: 20050328
  Serious: No
  Sender: FDA-Public Use
  Company Number: US-GLAXOSMITHKLINE-A0522815A

PATIENT
  Sex: Male

DRUGS (1)
  1. FLONASE [Suspect]
     Route: 045
     Dates: start: 20030901

REACTIONS (2)
  - BLOOD TESTOSTERONE INCREASED [None]
  - PROSTATIC SPECIFIC ANTIGEN INCREASED [None]
